FAERS Safety Report 8110348-5 (Version None)
Quarter: 2012Q1

REPORT INFORMATION
  Report Type: 
  Country: None (occurrence: None)
  Receive Date: 20120202
  Receipt Date: 20120119
  Transmission Date: 20120608
  Serious: Yes (Death)
  Sender: FDA-Public Use
  Company Number: US-ROCHE-791679

PATIENT
  Sex: Female

DRUGS (6)
  1. MABTHERA [Suspect]
  2. ACETAMINOPHEN [Concomitant]
     Route: 048
  3. VITAMIN B-12 [Concomitant]
     Route: 058
  4. DECADRON [Concomitant]
     Route: 042
  5. MABTHERA [Suspect]
     Indication: CHRONIC LYMPHOCYTIC LEUKAEMIA
     Route: 042
  6. MABTHERA [Suspect]
     Dosage: UNK
     Route: 042

REACTIONS (1)
  - PROGRESSIVE MULTIFOCAL LEUKOENCEPHALOPATHY [None]
